FAERS Safety Report 9409347 (Version 1)
Quarter: 2013Q3

REPORT INFORMATION
  Report Type: Spontaneous
  Country: US (occurrence: US)
  Receive Date: 20130719
  Receipt Date: 20130719
  Transmission Date: 20140515
  Serious: No
  Sender: FDA-Public Use
  Company Number: US-PFIZER INC-2013211073

PATIENT
  Age: 58 Year
  Sex: Male

DRUGS (9)
  1. ZOLOFT [Suspect]
     Dosage: UNK
  2. NEFAZODONE [Suspect]
     Dosage: UNK
  3. LEXAPRO [Suspect]
     Dosage: UNK
  4. ALLEGRA [Suspect]
     Dosage: UNK
  5. HYDROCODONE BITARTRATE [Suspect]
     Dosage: UNK
  6. MELOXICAM [Suspect]
     Dosage: UNK
  7. CLARITHROMYCIN [Suspect]
     Dosage: UNK
  8. ACETAMINOPHEN [Suspect]
     Dosage: UNK
  9. PENICILLIN [Suspect]
     Dosage: UNK

REACTIONS (1)
  - Drug hypersensitivity [Unknown]
